FAERS Safety Report 5131907-8 (Version None)
Quarter: 2006Q4

REPORT INFORMATION
  Report Type: 
  Country: None (occurrence: None)
  Receive Date: 20061016
  Receipt Date: 20061002
  Transmission Date: 20070319
  Serious: Yes (Hospitalization, Other)
  Sender: FDA-Public Use
  Company Number: 2006122582

PATIENT
  Age: 41 Year
  Sex: Female

DRUGS (3)
  1. DEMULEN 1/35-28 [Suspect]
     Indication: CONTRACEPTION
     Dates: start: 19860101, end: 19880101
  2. DEMULEN 1/35-28 [Suspect]
     Indication: CONTRACEPTION
     Dates: start: 19890101, end: 20060101
  3. SYNTHROID [Suspect]
     Indication: THYROID DISORDER

REACTIONS (7)
  - CONTUSION [None]
  - DRUG EXPOSURE BEFORE PREGNANCY [None]
  - INTERVERTEBRAL DISC PROTRUSION [None]
  - PREGNANCY [None]
  - ROAD TRAFFIC ACCIDENT [None]
  - THYROID OPERATION [None]
  - WEIGHT INCREASED [None]
